FAERS Safety Report 24271387 (Version 1)
Quarter: 2024Q3

REPORT INFORMATION
  Report Type: Report from Study
  Country: ZA (occurrence: None)
  Receive Date: 20240901
  Receipt Date: 20240901
  Transmission Date: 20241017
  Serious: Yes (Life-Threatening, Hospitalization)
  Sender: ASTRAZENECA
  Company Number: 2024A197686

PATIENT
  Age: 66 Year
  Sex: Male

DRUGS (4)
  1. DAPAGLIFLOZIN PROPANEDIOL [Suspect]
     Active Substance: DAPAGLIFLOZIN PROPANEDIOL
     Indication: Type 2 diabetes mellitus
     Dosage: 10.0MG UNKNOWN
     Route: 048
  2. CORALAN 5 MG [Concomitant]
     Indication: Angina pectoris
     Route: 048
  3. LIPOGEN 20 MG [Concomitant]
     Indication: Blood cholesterol
     Route: 048
  4. SPIRACTIN 25 MG [Concomitant]
     Indication: Hypertension
     Route: 048

REACTIONS (1)
  - Brain neoplasm [Unknown]
